FAERS Safety Report 24030490 (Version 2)
Quarter: 2024Q3

REPORT INFORMATION
  Report Type: Report from Study
  Country: TW (occurrence: None)
  Receive Date: 20240628
  Receipt Date: 20240808
  Transmission Date: 20241016
  Serious: No
  Sender: ASTRAZENECA
  Company Number: 2024A145450

PATIENT
  Sex: Male

DRUGS (1)
  1. IMFINZI [Suspect]
     Active Substance: DURVALUMAB
     Route: 041
     Dates: start: 20230516, end: 20240413

REACTIONS (2)
  - Drug resistance [Unknown]
  - Drug effect less than expected [Unknown]
